FAERS Safety Report 10727352 (Version 1)
Quarter: 2015Q1

REPORT INFORMATION
  Report Type: Spontaneous
  Country: BR (occurrence: BR)
  Receive Date: 20150121
  Receipt Date: 20150121
  Transmission Date: 20150721
  Serious: No
  Sender: FDA-Public Use
  Company Number: BR-LUNDBECK-DKLU1107166

PATIENT
  Age: 60 Year
  Sex: Male

DRUGS (4)
  1. FRISIUM [Suspect]
     Active Substance: CLOBAZAM
     Route: 048
  2. FRISIUM [Suspect]
     Active Substance: CLOBAZAM
     Indication: ANXIETY
     Route: 048
  3. FRISIUM [Suspect]
     Active Substance: CLOBAZAM
     Route: 048
  4. BRASART [Concomitant]
     Active Substance: VALSARTAN
     Indication: BLOOD PRESSURE
     Dates: start: 2013

REACTIONS (6)
  - Blood pressure increased [Recovered/Resolved]
  - Burning sensation [Recovering/Resolving]
  - Chills [Recovering/Resolving]
  - Hyperhidrosis [Recovering/Resolving]
  - Dizziness [Recovering/Resolving]
  - Insomnia [Recovering/Resolving]
